FAERS Safety Report 8614308 (Version 3)
Quarter: 2013Q3

REPORT INFORMATION
  Report Type: Spontaneous
  Country: US (occurrence: US)
  Receive Date: 20120614
  Receipt Date: 20130927
  Transmission Date: 20140515
  Serious: No
  Sender: FDA-Public Use
  Company Number: US-ASTRAZENECA-2012SE35224

PATIENT
  Age: 54 Year
  Sex: Male
  Weight: 70.3 kg

DRUGS (12)
  1. NEXIUM [Suspect]
     Indication: DIARRHOEA
     Route: 048
     Dates: start: 2010, end: 2011
  2. NEXIUM [Suspect]
     Indication: DYSPEPSIA
     Route: 048
     Dates: start: 2010, end: 2011
  3. NEXIUM [Suspect]
     Indication: DIARRHOEA
     Route: 048
     Dates: start: 20111028
  4. NEXIUM [Suspect]
     Indication: DYSPEPSIA
     Route: 048
     Dates: start: 20111028
  5. FAMOTIDINE [Concomitant]
     Dates: start: 20111028
  6. FLUTICASONE PROPIONATE [Concomitant]
     Dosage: 50 MLG
  7. TYLENOL [Concomitant]
  8. SIMVASTATIN [Concomitant]
  9. GABAPENTIN [Concomitant]
  10. VITAMIN D [Concomitant]
  11. TRAMADOL HCL [Concomitant]
  12. METHOCARBAMOL [Concomitant]

REACTIONS (5)
  - Osteoporosis [Unknown]
  - Multiple fractures [Unknown]
  - Drug hypersensitivity [Unknown]
  - Osteopenia [Unknown]
  - Arthralgia [Unknown]
